FAERS Safety Report 6409463-3 (Version None)
Quarter: 2009Q4

REPORT INFORMATION
  Report Type: 
  Country: None (occurrence: None)
  Receive Date: 20091019
  Receipt Date: 20091006
  Transmission Date: 20100525
  Serious: Yes (Hospitalization)
  Sender: FDA-Public Use
  Company Number: 238304J08USA

PATIENT
  Age: 27 Year
  Sex: Female

DRUGS (8)
  1. REBIF [Suspect]
     Indication: MULTIPLE SCLEROSIS
     Dosage: 44 MCG, 3 IN 1 WEEKS, SUBCUTANEOUS
     Route: 058
     Dates: start: 20071021, end: 20080827
  2. REBIF [Suspect]
     Indication: MULTIPLE SCLEROSIS
     Dosage: 44 MCG, 3 IN 1 WEEKS, SUBCUTANEOUS
     Route: 058
     Dates: start: 20080801
  3. REBIF [Suspect]
     Indication: MULTIPLE SCLEROSIS
     Dosage: 44 MCG, 3 IN 1 WEEKS, SUBCUTANEOUS
     Route: 058
     Dates: start: 20090301
  4. FLEXERIL [Concomitant]
  5. NAPROXEN [Concomitant]
  6. AMBIEN [Concomitant]
  7. VICODIN [Concomitant]
  8. REMPRO (PROVELLA -14) [Concomitant]

REACTIONS (6)
  - DEPRESSION [None]
  - HOMICIDAL IDEATION [None]
  - OVARIAN GERM CELL TERATOMA BENIGN [None]
  - PAIN [None]
  - SCAR [None]
  - STRESS [None]
